FAERS Safety Report 11139590 (Version 1)
Quarter: 2015Q2

REPORT INFORMATION
  Report Type: Spontaneous
  Country: ES (occurrence: ES)
  Receive Date: 20150527
  Receipt Date: 20150527
  Transmission Date: 20150821
  Serious: Yes (Death, Other)
  Sender: FDA-Public Use
  Company Number: ES-SA-2015SA069293

PATIENT
  Age: 70 Year
  Sex: Female
  Weight: 43 kg

DRUGS (3)
  1. CLEXANE [Suspect]
     Active Substance: ENOXAPARIN SODIUM
     Indication: PULMONARY EMBOLISM
     Route: 058
     Dates: start: 20150503, end: 20150505
  2. CEFTAZIDIME. [Concomitant]
     Active Substance: CEFTAZIDIME
  3. COTRIMOXAZOLE [Concomitant]
     Active Substance: SULFAMETHOXAZOLE\TRIMETHOPRIM

REACTIONS (3)
  - Arterial haemorrhage [Fatal]
  - Acute kidney injury [Unknown]
  - Intra-abdominal haematoma [Unknown]

NARRATIVE: CASE EVENT DATE: 201505
